FAERS Safety Report 5447696-3 (Version None)
Quarter: 2007Q3

REPORT INFORMATION
  Report Type: 
  Country: None (occurrence: None)
  Receive Date: 20070910
  Receipt Date: 20070830
  Transmission Date: 20080115
  Serious: Yes (Hospitalization)
  Sender: FDA-Public Use
  Company Number: CO-MERCK-0708COL00005

PATIENT

DRUGS (1)
  1. CANCIDAS [Suspect]
     Indication: SYSTEMIC CANDIDA
     Route: 065

REACTIONS (1)
  - NO THERAPEUTIC RESPONSE [None]
